FAERS Safety Report 8817689 (Version 1)
Quarter: 2012Q4

REPORT INFORMATION
  Report Type: 
  Country: US (occurrence: US)
  Receive Date: 20121001
  Receipt Date: 20121001
  Transmission Date: 20130627
  Serious: Yes (Other)
  Sender: FDA-Public Use
  Company Number: PHEH2012US018812

PATIENT
  Sex: Female

DRUGS (6)
  1. RECLAST [Suspect]
     Route: 042
  2. ALLERGY MEDICATION [Suspect]
  3. NORVASC [Concomitant]
  4. ATENOLOL [Concomitant]
  5. VITAMIN D [Concomitant]
     Dosage: 2 UKN, QD
  6. SYNTHROID [Concomitant]

REACTIONS (16)
  - Upper limb fracture [Unknown]
  - Irritable bowel syndrome [Unknown]
  - Ear pain [Unknown]
  - Hot flush [Unknown]
  - Feeling abnormal [Unknown]
  - Hypoaesthesia oral [Unknown]
  - Toothache [Unknown]
  - Mastication disorder [Unknown]
  - Aphagia [Unknown]
  - Pain in jaw [Unknown]
  - Myalgia [Unknown]
  - Hypoaesthesia [Unknown]
  - Chills [Unknown]
  - Pain in extremity [Unknown]
  - Gait disturbance [Unknown]
  - Headache [Unknown]
